FAERS Safety Report 5818998-3 (Version None)
Quarter: 2008Q3

REPORT INFORMATION
  Report Type: 
  Country: None (occurrence: None)
  Receive Date: 20080721
  Receipt Date: 20080721
  Transmission Date: 20090109
  Serious: Yes (Hospitalization)
  Sender: FDA-Public Use
  Company Number: None

PATIENT
  Sex: Female
  Weight: 67.7 kg

DRUGS (5)
  1. VALCYTE [Suspect]
     Indication: CYTOMEGALOVIRUS INFECTION
     Dosage: 450 MG DAILY -NG TUBE- OTHER
     Route: 050
     Dates: start: 20080626, end: 20080715
  2. VALCYTE [Suspect]
     Indication: RENAL TRANSPLANT
     Dosage: 450 MG DAILY -NG TUBE- OTHER
     Route: 050
     Dates: start: 20080626, end: 20080715
  3. CELLCEPT [Concomitant]
  4. PROGRAF ORAL SUSP [Concomitant]
  5. IMMUNE GOBULIN HUMAN IVIG [Concomitant]

REACTIONS (1)
  - WHITE BLOOD CELL COUNT DECREASED [None]
